FAERS Safety Report 7977348 (Version 2)
Quarter: 2013Q2

REPORT INFORMATION
  Report Type: Spontaneous
  Country: US (occurrence: US)
  Receive Date: 20110607
  Receipt Date: 20130514
  Transmission Date: 20140414
  Serious: No
  Sender: FDA-Public Use
  Company Number: US-ASTRAZENECA-2010SE61069

PATIENT
  Age: 48 Year
  Sex: Female

DRUGS (3)
  1. PRILOSEC [Suspect]
     Route: 048
  2. PRILOSEC OTC [Suspect]
     Route: 048
  3. NEXIUM [Suspect]
     Route: 048

REACTIONS (10)
  - Crying [Unknown]
  - Nervousness [Unknown]
  - Cardiac disorder [Unknown]
  - Hypertension [Unknown]
  - Blood cholesterol increased [Unknown]
  - Malaise [Unknown]
  - Depression [Unknown]
  - Nausea [Unknown]
  - Headache [Unknown]
  - Agitation [Unknown]
